FAERS Safety Report 19876963 (Version 4)
Quarter: 2021Q4

REPORT INFORMATION
  Report Type: Report from Study
  Country: CA (occurrence: CA)
  Receive Date: 20210924
  Receipt Date: 20211201
  Transmission Date: 20220303
  Serious: Yes (Death, Hospitalization, Other)
  Sender: FDA-Public Use
  Company Number: CA-KOREA IPSEN PHARMA-2021-22910

PATIENT
  Age: 75 Year
  Sex: Male

DRUGS (18)
  1. LANREOTIDE ACETATE [Suspect]
     Active Substance: LANREOTIDE ACETATE
     Indication: Neuroendocrine tumour
     Route: 058
     Dates: start: 20210529, end: 2021
  2. ALDACTONE [Concomitant]
     Active Substance: SPIRONOLACTONE
  3. NOVOGESIC [Concomitant]
  4. VALSARTAN [Concomitant]
     Active Substance: VALSARTAN
  5. PREGABALIN [Concomitant]
     Active Substance: PREGABALIN
  6. PANTOPRAZOLE [Concomitant]
     Active Substance: PANTOPRAZOLE
  7. FUROSEMIDE [Concomitant]
     Active Substance: FUROSEMIDE
  8. JARDIANCE [Concomitant]
     Active Substance: EMPAGLIFLOZIN
  9. MAR-ALLOPURINOL [Concomitant]
  10. VITAMIN B12 [Concomitant]
     Active Substance: CYANOCOBALAMIN
  11. CLOPIDOGREL [Concomitant]
     Active Substance: CLOPIDOGREL BISULFATE
  12. ATORVASTATIN [Concomitant]
     Active Substance: ATORVASTATIN
  13. ELIQUIS [Concomitant]
     Active Substance: APIXABAN
  14. AMIODARONE [Concomitant]
     Active Substance: AMIODARONE
  15. MINT-GLICLAZIDE [Concomitant]
  16. PMS SULFATE [Concomitant]
  17. CARVEDILOL [Concomitant]
     Active Substance: CARVEDILOL
  18. JANUMET [Concomitant]
     Active Substance: METFORMIN HYDROCHLORIDE\SITAGLIPTIN PHOSPHATE

REACTIONS (6)
  - Gastric haemorrhage [Fatal]
  - Renal failure [Fatal]
  - Pyrexia [Unknown]
  - Diarrhoea [Unknown]
  - Blood bilirubin increased [Unknown]
  - Metastasis [Unknown]

NARRATIVE: CASE EVENT DATE: 20210101
